FAERS Safety Report 11225225 (Version 1)
Quarter: 2015Q2

REPORT INFORMATION
  Report Type: Spontaneous
  Country: US (occurrence: None)
  Receive Date: 20150626
  Receipt Date: 20150626
  Transmission Date: 20150821
  Serious: Yes (Hospitalization, Other)
  Sender: FDA-Public Use
  Company Number: None

PATIENT
  Age: 61 Year
  Sex: Female
  Weight: 49.9 kg

DRUGS (11)
  1. ASPIRN [Concomitant]
     Active Substance: ASPIRIN
  2. PRAVASTATIN [Concomitant]
     Active Substance: PRAVASTATIN\PRAVASTATIN SODIUM
  3. POTASSIUM [Concomitant]
     Active Substance: POTASSIUM
  4. CARVEDILOL. [Concomitant]
     Active Substance: CARVEDILOL
  5. CRESTOR [Concomitant]
     Active Substance: ROSUVASTATIN CALCIUM
  6. GARDEN OF LIFE PROTEIN SHACK [Concomitant]
  7. CRESTOR [Suspect]
     Active Substance: ROSUVASTATIN CALCIUM
     Indication: DRUG THERAPY
     Route: 048
     Dates: start: 20150515, end: 20150604
  8. D-3 VEGAN [Concomitant]
  9. IODINE [Concomitant]
     Active Substance: IODINE
  10. CLODIDOGREL [Concomitant]
  11. TUMERIC [Concomitant]

REACTIONS (12)
  - Headache [None]
  - Nausea [None]
  - Peripheral swelling [None]
  - Herpes zoster [None]
  - Abdominal pain upper [None]
  - Back pain [None]
  - Diarrhoea [None]
  - Fatigue [None]
  - Local swelling [None]
  - Vision blurred [None]
  - Myalgia [None]
  - Weight decreased [None]

NARRATIVE: CASE EVENT DATE: 20150515
